FAERS Safety Report 8435353 (Version 4)
Quarter: 2012Q4

REPORT INFORMATION
  Report Type: 
  Country: US (occurrence: US)
  Receive Date: 20120301
  Receipt Date: 20121218
  Transmission Date: 20130627
  Serious: Yes (Hospitalization)
  Sender: FDA-Public Use
  Company Number: US-GLAXOSMITHKLINE-A0932360A

PATIENT
  Age: 69 Year
  Sex: Male
  Weight: 105.5 kg

DRUGS (1)
  1. AVANDIA [Suspect]
     Indication: DIABETES MELLITUS
     Dosage: 8MG Twice per day
     Route: 048
     Dates: start: 200103, end: 200902

REACTIONS (4)
  - Myocardial ischaemia [Recovering/Resolving]
  - Myocardial infarction [Unknown]
  - Ejection fraction decreased [Unknown]
  - Coronary arterial stent insertion [Unknown]
